FAERS Safety Report 12867189 (Version 1)
Quarter: 2016Q4

REPORT INFORMATION
  Report Type: Spontaneous
  Country: US (occurrence: US)
  Receive Date: 20161020
  Receipt Date: 20161020
  Transmission Date: 20170207
  Serious: No
  Sender: FDA-Public Use
  Company Number: US-JAZZ-2016-US-014800

PATIENT
  Sex: Female

DRUGS (34)
  1. XYREM [Suspect]
     Active Substance: SODIUM OXYBATE
     Dosage: 4.5 G, BID
     Route: 048
     Dates: start: 201209
  2. ZINC [Concomitant]
     Active Substance: ZINC\ZINC CHLORIDE
  3. WESTHROID [Concomitant]
     Active Substance: THYROGLOBULIN
  4. DEMEROL [Concomitant]
     Active Substance: MEPERIDINE HYDROCHLORIDE
  5. PROMETHAZINE [Concomitant]
     Active Substance: PROMETHAZINE\PROMETHAZINE HYDROCHLORIDE
  6. MINIVELLE [Concomitant]
     Active Substance: ESTRADIOL
  7. VITAMIN C [Concomitant]
     Active Substance: ASCORBIC ACID
  8. CALCARB [Concomitant]
  9. MULTI DAY MULTIVITAMIN [Concomitant]
  10. KLONOPIN [Concomitant]
     Active Substance: CLONAZEPAM
  11. XYREM [Suspect]
     Active Substance: SODIUM OXYBATE
     Indication: NARCOLEPSY
     Dosage: 2.25 G, BID
     Route: 048
     Dates: start: 201203, end: 201204
  12. CALCIUM CITRATE WITH VITAMIN D3 [Concomitant]
  13. SPIRONOLACTONE. [Concomitant]
     Active Substance: SPIRONOLACTONE
  14. TRAMADOL HCL [Concomitant]
     Active Substance: TRAMADOL HYDROCHLORIDE
  15. MAGNESIUM [Concomitant]
     Active Substance: MAGNESIUM
  16. ZINC GLUCONATE [Concomitant]
     Active Substance: ZINC GLUCONATE
  17. MELATONIN [Concomitant]
     Active Substance: MELATONIN
  18. VITAMIN K [Concomitant]
     Active Substance: PHYTONADIONE
  19. XYREM [Suspect]
     Active Substance: SODIUM OXYBATE
     Dosage: 3 G, BID
     Route: 048
     Dates: start: 201204, end: 201209
  20. CALAN [Concomitant]
     Active Substance: VERAPAMIL HYDROCHLORIDE
  21. FOLIC ACID ALMUS [Concomitant]
     Active Substance: FOLIC ACID
  22. SELENIUM [Concomitant]
     Active Substance: SELENIUM
  23. MAGNESIUM CITRATE. [Concomitant]
     Active Substance: MAGNESIUM CITRATE
  24. NATURE-THROID [Concomitant]
     Active Substance: THYROID, PORCINE
  25. PHENERGAN [Concomitant]
     Active Substance: PROMETHAZINE HYDROCHLORIDE
  26. CHROMIUM PICOLINAT [Concomitant]
  27. TRAZODONE [Concomitant]
     Active Substance: TRAZODONE HYDROCHLORIDE
  28. VITAMIN D3 [Concomitant]
     Active Substance: CHOLECALCIFEROL
  29. XANAX [Concomitant]
     Active Substance: ALPRAZOLAM
  30. VERAPAMIL [Concomitant]
     Active Substance: VERAPAMIL HYDROCHLORIDE
  31. METHOCARBAMOL. [Concomitant]
     Active Substance: METHOCARBAMOL
  32. ALBUTEROL SULFATE. [Concomitant]
     Active Substance: ALBUTEROL SULFATE
  33. IODINE. [Concomitant]
     Active Substance: IODINE
  34. ATIVAN [Concomitant]
     Active Substance: LORAZEPAM

REACTIONS (5)
  - Spondylitis [Not Recovered/Not Resolved]
  - Activities of daily living impaired [Unknown]
  - Influenza [Unknown]
  - Headache [Not Recovered/Not Resolved]
  - Migraine [Not Recovered/Not Resolved]
